FAERS Safety Report 6801191-5 (Version None)
Quarter: 2010Q2

REPORT INFORMATION
  Report Type: 
  Country: None (occurrence: None)
  Receive Date: 20100629
  Receipt Date: 20100622
  Transmission Date: 20101027
  Serious: Yes (Disabling, Other)
  Sender: FDA-Public Use
  Company Number: JP-PFIZER INC-2010067792

PATIENT
  Age: 73 Year
  Sex: Female
  Weight: 47 kg

DRUGS (6)
  1. ATARAX [Suspect]
     Indication: ANXIETY DISORDER
     Dosage: 25 MG, 1X/DAY
     Route: 030
     Dates: start: 20100527, end: 20100527
  2. ONCOVIN [Suspect]
     Indication: LYMPHOMA
     Dosage: 1.8 MG, 1X/DAY
     Route: 041
     Dates: start: 20100225, end: 20100520
  3. RITUXAN [Concomitant]
     Indication: LYMPHOMA
     Dosage: 500 MG, 1X/DAY
     Dates: start: 20100223, end: 20100518
  4. ENDOXAN [Concomitant]
     Indication: LYMPHOMA
     Dosage: 1000 MG, 1X/DAY
     Dates: start: 20100225, end: 20100520
  5. ADRIACIN [Concomitant]
     Indication: LYMPHOMA
     Dosage: 65 MG, 1X/DAY
     Route: 041
     Dates: start: 20100225, end: 20100520
  6. PREDONINE [Concomitant]
     Indication: LYMPHOMA
     Dosage: 100 MG, 1X/DAY
     Route: 041
     Dates: start: 20100225, end: 20100520

REACTIONS (1)
  - RADIAL NERVE PALSY [None]
